FAERS Safety Report 12966367 (Version 5)
Quarter: 2016Q4

REPORT INFORMATION
  Report Type: Spontaneous
  Country: CN (occurrence: CN)
  Receive Date: 20161122
  Receipt Date: 20161222
  Transmission Date: 20170207
  Serious: Yes (Death, Life-Threatening)
  Sender: FDA-Public Use
  Company Number: CN-ASTRAZENECA-2016SF22071

PATIENT
  Age: 25997 Day
  Sex: Male
  Weight: 60 kg

DRUGS (7)
  1. BRILINTA [Suspect]
     Active Substance: TICAGRELOR
     Indication: ANTICOAGULANT THERAPY
     Dosage: 180.0MG ONCE/SINGLE ADMINISTRATION
     Route: 048
     Dates: start: 20161027, end: 20161027
  2. SUXIAO JIUXIN [Concomitant]
  3. HEPARIN SODIUM. [Suspect]
     Active Substance: HEPARIN SODIUM
     Indication: ANTICOAGULANT THERAPY
     Dosage: 25000.0IU ONCE/SINGLE ADMINISTRATION
     Route: 042
     Dates: start: 20161027, end: 20161027
  4. BAYASPIRIN [Concomitant]
     Active Substance: ASPIRIN
     Indication: PLATELET AGGREGATION
     Route: 048
     Dates: start: 20161024, end: 20161027
  5. TIROFIBAN HYDROCHLORIDE AND SODIUM CHLORIDE INJECTION [Suspect]
     Active Substance: TIROFIBAN HYDROCHLORIDE
     Indication: ELECTROCARDIOGRAM AMBULATORY
     Dosage: 5MG: 100ML, VIA PUMPING: 3D/MIN
     Route: 041
     Dates: start: 20161027, end: 20161027
  6. TIROFIBAN HYDROCHLORIDE AND SODIUM CHLORIDE INJECTION [Suspect]
     Active Substance: TIROFIBAN HYDROCHLORIDE
     Indication: ANTIPLATELET THERAPY
     Dosage: 5MG: 100ML, VIA PUMPING: 3D/MIN
     Route: 041
     Dates: start: 20161027, end: 20161027
  7. ANTIHYPERTENSION TREATMENT [Concomitant]

REACTIONS (3)
  - Brain herniation [Fatal]
  - Coma [Unknown]
  - Cerebral haemorrhage [Fatal]

NARRATIVE: CASE EVENT DATE: 20161027
